FAERS Safety Report 26158679 (Version 1)
Quarter: 2025Q4

REPORT INFORMATION
  Report Type: Report from Study
  Country: GB (occurrence: GB)
  Receive Date: 20251215
  Receipt Date: 20251215
  Transmission Date: 20260117
  Serious: Yes (Hospitalization, Other)
  Sender: MERCK KGAA
  Company Number: GB-Merck Healthcare KGaA-2025062770

PATIENT
  Age: 60 Year
  Sex: Male

DRUGS (1)
  1. MAVENCLAD [Suspect]
     Active Substance: CLADRIBINE
     Indication: Multiple sclerosis
     Dosage: YEAR ONE WEEK ONE THERAPY: TWO TABLETS ON DAYS 1 TO 4 AND ONE TABLET ON DAY 5
     Dates: start: 20240603

REACTIONS (3)
  - Loss of consciousness [Unknown]
  - Gait inability [Unknown]
  - Multiple sclerosis [Unknown]
